FAERS Safety Report 22014082 (Version 2)
Quarter: 2023Q1

REPORT INFORMATION
  Report Type: Report from Study
  Country: ES (occurrence: ES)
  Receive Date: 20230221
  Receipt Date: 20230228
  Transmission Date: 20230418
  Serious: Yes (Death, Hospitalization, Other)
  Sender: FDA-Public Use
  Company Number: ES-GLAXOSMITHKLINE-ES2023GSK005037

PATIENT
  Age: 77 Year
  Sex: Male

DRUGS (1)
  1. TIOTROPIUM [Suspect]
     Active Substance: TIOTROPIUM
     Indication: Chronic obstructive pulmonary disease
     Dosage: (DOSES PER INHALER: 30)
     Dates: start: 20181217, end: 20230118

REACTIONS (2)
  - Epilepsy [Fatal]
  - Hypertension [Fatal]

NARRATIVE: CASE EVENT DATE: 20221231
